FAERS Safety Report 4895082-7 (Version None)
Quarter: 2006Q1

REPORT INFORMATION
  Report Type: 
  Country: None (occurrence: None)
  Receive Date: 20060130
  Receipt Date: 20050815
  Transmission Date: 20060701
  Serious: Yes (Hospitalization)
  Sender: FDA-Public Use
  Company Number: PHHO2005DE12904

PATIENT
  Age: 48 Year
  Sex: Male
  Weight: 72.4 kg

DRUGS (5)
  1. EVEROLIMUS VS MMF [Suspect]
     Indication: HEART TRANSPLANT
     Dosage: 2G DAILY DOSE
     Dates: start: 20041021, end: 20050811
  2. EVEROLIMUS VS MMF [Suspect]
     Dosage: 500 MG, BID
     Route: 048
     Dates: start: 20050817, end: 20050823
  3. EVEROLIMUS VS MMF [Suspect]
     Dosage: 1000 MG, BID
     Route: 048
     Dates: start: 20050824, end: 20051018
  4. NEORAL [Suspect]
     Indication: HEART TRANSPLANT
     Dosage: 55 MG, BID
     Dates: start: 20041021
  5. PREDNISOLONE [Suspect]
     Indication: HEART TRANSPLANT
     Dosage: 5 MG, QD
     Dates: start: 20030924

REACTIONS (5)
  - COUGH [None]
  - INFLAMMATION [None]
  - LUNG INFILTRATION [None]
  - PNEUMONIA [None]
  - PYREXIA [None]
